FAERS Safety Report 10010242 (Version 1)
Quarter: 2014Q1

REPORT INFORMATION
  Report Type: Spontaneous
  Country: IE (occurrence: IE)
  Receive Date: 20140313
  Receipt Date: 20140313
  Transmission Date: 20141002
  Serious: Yes (Life-Threatening, Other)
  Sender: FDA-Public Use
  Company Number: IE-ELI_LILLY_AND_COMPANY-IE201403002325

PATIENT
  Age: 60 Year
  Sex: Male

DRUGS (1)
  1. CIALIS [Suspect]
     Indication: ERECTILE DYSFUNCTION
     Dosage: 10 MG, UNKNOWN
     Route: 048
     Dates: start: 20110201, end: 20130331

REACTIONS (2)
  - Arrhythmia [Recovered/Resolved]
  - Presyncope [Recovered/Resolved]
